FAERS Safety Report 15139794 (Version 3)
Quarter: 2018Q4

REPORT INFORMATION
  Report Type: Spontaneous
  Country: US (occurrence: US)
  Receive Date: 20180713
  Receipt Date: 20181203
  Transmission Date: 20190204
  Serious: No
  Sender: FDA-Public Use
  Company Number: US-SA-2018SA182907

PATIENT
  Age: 62 Year
  Sex: Male
  Weight: 79.37 kg

DRUGS (24)
  1. SYMBICORT [Concomitant]
     Active Substance: BUDESONIDE\FORMOTEROL FUMARATE DIHYDRATE
     Dosage: 2 PUFF
     Route: 055
     Dates: start: 20180119
  2. ALLOPURINOL. [Concomitant]
     Active Substance: ALLOPURINOL
     Dosage: 1 DF, QD
     Route: 048
     Dates: start: 20171222
  3. TIKOSYN [Concomitant]
     Active Substance: DOFETILIDE
     Dosage: 1 DF, Q12H
     Route: 048
     Dates: start: 20180216
  4. SODIUM CHLORIDE. [Concomitant]
     Active Substance: SODIUM CHLORIDE
     Dosage: 0.9 %
     Route: 042
     Dates: start: 20180130
  5. METOPROLOL SUCCINATE. [Concomitant]
     Active Substance: METOPROLOL SUCCINATE
     Dosage: 1 DF, BID
     Route: 048
     Dates: start: 20180119
  6. LEVOTHYROXINE. [Concomitant]
     Active Substance: LEVOTHYROXINE
     Dosage: 1 DF, QD
     Route: 048
     Dates: start: 20180106
  7. WARFARIN [Concomitant]
     Active Substance: WARFARIN
     Dosage: 1 DF
     Route: 048
     Dates: start: 20180330
  8. PROGRAF [Concomitant]
     Active Substance: TACROLIMUS\TACROLIMUS ANHYDROUS
     Dosage: 1 DF
     Route: 048
     Dates: start: 20180329
  9. LOSARTAN. [Concomitant]
     Active Substance: LOSARTAN
     Dosage: 1 DF, BID
     Dates: start: 20180216
  10. DIPHENHYDRAMINE. [Concomitant]
     Active Substance: DIPHENHYDRAMINE
     Indication: ANAPHYLACTIC REACTION
     Dosage: 25 MG, PRN
     Route: 048
     Dates: start: 20180130
  11. NORMAL SALINE [Concomitant]
     Active Substance: SODIUM CHLORIDE
     Dosage: 0.9 %
     Route: 042
     Dates: start: 20180130
  12. RANITIDINE. [Concomitant]
     Active Substance: RANITIDINE
     Dosage: 1 DF, QD
     Route: 048
     Dates: start: 20180119
  13. EPINEPHRINE. [Concomitant]
     Active Substance: EPINEPHRINE
     Indication: ANAPHYLACTIC REACTION
     Dosage: 0.3 MG, PRN
     Route: 030
     Dates: start: 20180130
  14. IRON [Concomitant]
     Active Substance: IRON
     Dosage: 1 DF, QD
     Route: 048
     Dates: start: 20180106
  15. PREDNISONE. [Concomitant]
     Active Substance: PREDNISONE
     Dosage: 1 DF, QOD
     Route: 048
     Dates: start: 20170708
  16. LASIX [Concomitant]
     Active Substance: FUROSEMIDE
     Dosage: 1 DF
     Route: 048
     Dates: start: 20180508
  17. DULOXETINE. [Concomitant]
     Active Substance: DULOXETINE
     Dosage: 1 DF, QD
     Route: 048
     Dates: start: 20180214
  18. VITAMIN D3 [Concomitant]
     Active Substance: CHOLECALCIFEROL
     Dosage: 1 DF, QD
     Route: 048
     Dates: start: 20180119
  19. FABRAZYME [Suspect]
     Active Substance: AGALSIDASE BETA
     Indication: FABRY^S DISEASE
     Dosage: 0.76 MG/KG, QOW
     Route: 041
  20. STERILE WATER [Concomitant]
     Active Substance: WATER
     Dosage: 1 DF
     Route: 042
     Dates: start: 20180130
  21. IPRATROPIUM/ALBUTEROL [Concomitant]
     Active Substance: ALBUTEROL\IPRATROPIUM
     Dosage: 1 VIAL VIA NEB 4 TIMES DAILY AS NEEDED
     Dates: start: 20180119
  22. CELLCEPT [Concomitant]
     Active Substance: MYCOPHENOLATE MOFETIL\MYCOPHENOLATE MOFETIL HYDROCHLORIDE
     Dosage: 1 DF, BID
     Route: 048
     Dates: start: 20180119
  23. CALCITRIOL. [Concomitant]
     Active Substance: CALCITRIOL
     Dosage: 1 DF, QD
     Route: 048
     Dates: start: 20180106
  24. MULTIVITAMIN [ASCORBIC ACID;CALCIUM PANTOTHENATE;COLECALCIFEROL;CYANOC [Concomitant]
     Dosage: 2 DF, QD
     Route: 048
     Dates: start: 20170708

REACTIONS (2)
  - Dyspnoea exertional [Unknown]
  - Weight increased [Unknown]

NARRATIVE: CASE EVENT DATE: 201807
